FAERS Safety Report 18521730 (Version 1)
Quarter: 2020Q4

REPORT INFORMATION
  Report Type: Spontaneous
  Country: US (occurrence: US)
  Receive Date: 20201118
  Receipt Date: 20201118
  Transmission Date: 20210114
  Serious: Yes (Hospitalization)
  Sender: FDA-Public Use
  Company Number: None

PATIENT
  Age: 80 Year

DRUGS (10)
  1. TAMSULOSIN [Concomitant]
     Active Substance: TAMSULOSIN
  2. ESCITALOPRAM [Concomitant]
     Active Substance: ESCITALOPRAM OXALATE
  3. HYDROCO/APAP [Concomitant]
     Active Substance: ACETAMINOPHEN\HYDROCODONE
  4. CLOBETASOL [Concomitant]
     Active Substance: CLOBETASOL
  5. LIDOCAINE. [Concomitant]
     Active Substance: LIDOCAINE
  6. REPATHA [Suspect]
     Active Substance: EVOLOCUMAB
     Indication: TYPE IIA HYPERLIPIDAEMIA
     Dosage: ?          OTHER DOSE:1 PEN;?
     Route: 058
     Dates: start: 20180127
  7. CLOPIDOGREL [Concomitant]
     Active Substance: CLOPIDOGREL BISULFATE
  8. OMEPRAZOLE. [Concomitant]
     Active Substance: OMEPRAZOLE
  9. FUROSEMIDE. [Concomitant]
     Active Substance: FUROSEMIDE
  10. METOPROL SUC ER [Concomitant]

REACTIONS (2)
  - Cerebrovascular accident [None]
  - Myocardial infarction [None]

NARRATIVE: CASE EVENT DATE: 20201105
